FAERS Safety Report 6022365-X (Version None)
Quarter: 2008Q4

REPORT INFORMATION
  Report Type: 
  Country: None (occurrence: None)
  Receive Date: 20081230
  Receipt Date: 20080808
  Transmission Date: 20090506
  Serious: No
  Sender: FDA-Public Use
  Company Number: US-KINGPHARMUSA00001-K200800941

PATIENT
  Sex: Female

DRUGS (3)
  1. INTAL [Suspect]
     Indication: ASTHMA EXERCISE INDUCED
     Dosage: UNK, QID
     Dates: start: 19860101, end: 19870101
  2. THEOPHYLLINE [Concomitant]
     Indication: ASTHMA EXERCISE INDUCED
  3. ALBUTEROL SULFATE                  /00139502/ [Concomitant]
     Indication: ASTHMA EXERCISE INDUCED
     Dosage: UNK, PRN
     Dates: end: 20080701

REACTIONS (7)
  - DRUG INEFFECTIVE [None]
  - DYSPHONIA [None]
  - LARYNGITIS [None]
  - OROPHARYNGEAL PAIN [None]
  - THROAT IRRITATION [None]
  - VOCAL CORD DISORDER [None]
  - VOCAL CORD INFLAMMATION [None]
